FAERS Safety Report 8824483 (Version 1)
Quarter: 2012Q4

REPORT INFORMATION
  Report Type: 
  Country: FR (occurrence: FR)
  Receive Date: 20121004
  Receipt Date: 20121004
  Transmission Date: 20130627
  Serious: Yes (Hospitalization, Other)
  Sender: FDA-Public Use
  Company Number: FR-BRISTOL-MYERS SQUIBB COMPANY-16998544

PATIENT
  Age: 73 Year
  Sex: Male

DRUGS (14)
  1. APROVEL TABS [Suspect]
  2. ROCEPHINE [Interacting]
     Indication: PYREXIA
     Dosage: Rocephine 2g, powder for solution for infusion
     Dates: start: 20120714
  3. ACUPAN [Concomitant]
  4. ASPEGIC [Concomitant]
  5. ATARAX [Concomitant]
  6. BIPRETERAX [Concomitant]
  7. CETIRIZINE [Concomitant]
  8. GLIPIZIDE [Concomitant]
  9. METFORMINE [Concomitant]
  10. METRONIDAZOLE [Concomitant]
  11. OGASTORO [Concomitant]
  12. PERFALGAN [Concomitant]
  13. PRIMPERAN [Concomitant]
  14. TOPALGIC [Concomitant]

REACTIONS (2)
  - Rash [Recovered/Resolved]
  - Drug interaction [Unknown]
